FAERS Safety Report 12486965 (Version 1)
Quarter: 2016Q2

REPORT INFORMATION
  Report Type: Spontaneous
  Country: US (occurrence: None)
  Receive Date: 20160621
  Receipt Date: 20160621
  Transmission Date: 20160815
  Serious: Yes (Hospitalization)
  Sender: FDA-Public Use
  Company Number: None

PATIENT
  Age: 52 Year
  Sex: Male
  Weight: 94.5 kg

DRUGS (16)
  1. VANCOMYCIN [Concomitant]
     Active Substance: VANCOMYCIN
  2. METOPROLOL SUCCINATE. [Concomitant]
     Active Substance: METOPROLOL SUCCINATE
  3. HEPARIN [Concomitant]
     Active Substance: HEPARIN SODIUM
  4. HYDROMORPHONE [Concomitant]
     Active Substance: HYDROMORPHONE
  5. OXYCODONE [Concomitant]
     Active Substance: OXYCODONE
  6. CLONIDINE. [Concomitant]
     Active Substance: CLONIDINE
  7. CALCITROL [Concomitant]
     Active Substance: CALCITRIOL
  8. ATORVASTATIN [Concomitant]
     Active Substance: ATORVASTATIN
  9. ASPIRIN. [Concomitant]
     Active Substance: ASPIRIN
  10. BACLOFEN, 20 MG [Suspect]
     Active Substance: BACLOFEN
     Route: 048
     Dates: start: 20160615, end: 20160616
  11. DIAZEPAM. [Concomitant]
     Active Substance: DIAZEPAM
  12. FUROSEMIDE. [Concomitant]
     Active Substance: FUROSEMIDE
  13. PANTOPRAZOLE [Concomitant]
     Active Substance: PANTOPRAZOLE SODIUM
  14. DULOXETINE. [Concomitant]
     Active Substance: DULOXETINE
  15. ASPART INSULIN [Concomitant]
  16. LEVEMIR [Concomitant]
     Active Substance: INSULIN DETEMIR

REACTIONS (2)
  - Incorrect dose administered [None]
  - Toxic encephalopathy [None]

NARRATIVE: CASE EVENT DATE: 20160616
